FAERS Safety Report 4741552-1 (Version None)
Quarter: 2005Q3

REPORT INFORMATION
  Report Type: 
  Country: None (occurrence: None)
  Receive Date: 20050808
  Receipt Date: 20050714
  Transmission Date: 20060218
  Serious: Yes (Hospitalization)
  Sender: FDA-Public Use
  Company Number: 216562

PATIENT
  Age: 54 Year
  Sex: Male
  Weight: 84.9 kg

DRUGS (6)
  1. AVASTIN [Suspect]
     Indication: COLON CANCER
     Dosage: 416 MG, Q2W, INTRAVENOUS
     Route: 042
     Dates: start: 20050517
  2. OXALIPLATIN             (OXALIPLATIN) [Suspect]
     Indication: COLON CANCER
     Dosage: 170 MG, Q2W, INTRAVENOUS
     Route: 042
     Dates: start: 20050517
  3. 5-FU               (FLUOROURACIL) [Suspect]
     Indication: COLON CANCER
     Dosage: 800 MG, Q2W, INTRAVENOUS
     Route: 042
     Dates: start: 20050517
  4. LEUCOVORIN CALCIUM [Suspect]
     Indication: COLON CANCER
     Dosage: 400 MG, Q2W, INTRAVENOUS
     Route: 042
  5. ENOXAPARIN SODIUM [Concomitant]
  6. DEXAMETHASONE [Concomitant]

REACTIONS (1)
  - PYREXIA [None]
